FAERS Safety Report 10098371 (Version 1)
Quarter: 2014Q2

REPORT INFORMATION
  Report Type: Spontaneous
  Country: US (occurrence: US)
  Receive Date: 20140423
  Receipt Date: 20140423
  Transmission Date: 20141212
  Serious: No
  Sender: FDA-Public Use
  Company Number: US-PFIZER INC-2014109346

PATIENT
  Sex: Female

DRUGS (2)
  1. GLIPIZIDE [Suspect]
     Dosage: 10 MG, 2X/DAY
  2. JANUVIA [Suspect]
     Dosage: 100 MG, 1X/DAY

REACTIONS (2)
  - Feeling jittery [Unknown]
  - Blood glucose decreased [Unknown]
